FAERS Safety Report 11458675 (Version 1)
Quarter: 2015Q3

REPORT INFORMATION
  Report Type: Spontaneous
  Country: US (occurrence: None)
  Receive Date: 20150903
  Receipt Date: 20150903
  Transmission Date: 20151125
  Serious: No
  Sender: FDA-Public Use
  Company Number: None

PATIENT
  Age: 42 Year
  Sex: Female

DRUGS (1)
  1. MIRENA [Suspect]
     Active Substance: LEVONORGESTREL

REACTIONS (6)
  - Fatigue [None]
  - Depression [None]
  - Loss of libido [None]
  - Migraine [None]
  - Mood altered [None]
  - Pain [None]

NARRATIVE: CASE EVENT DATE: 20120501
